FAERS Safety Report 5528844-3 (Version None)
Quarter: 2007Q4

REPORT INFORMATION
  Report Type: 
  Country: None (occurrence: None)
  Receive Date: 20071113
  Receipt Date: 20070808
  Transmission Date: 20080405
  Serious: No
  Sender: FDA-Public Use
  Company Number: 200715951US

PATIENT
  Sex: Female

DRUGS (2)
  1. APIDRA [Suspect]
     Indication: DIABETES MELLITUS
     Dosage: 10 U TID INJ
     Route: 042
     Dates: start: 20070101, end: 20070802
  2. NOVOLOG [Concomitant]

REACTIONS (1)
  - HEART RATE INCREASED [None]
